FAERS Safety Report 6107443-9 (Version None)
Quarter: 2009Q1

REPORT INFORMATION
  Report Type: 
  Country: None (occurrence: None)
  Receive Date: 20090309
  Receipt Date: 20090227
  Transmission Date: 20090719
  Serious: Yes (Hospitalization, Other)
  Sender: FDA-Public Use
  Company Number: PHHO2009US01682

PATIENT
  Sex: Male
  Weight: 70.7 kg

DRUGS (1)
  1. STI571/CGP57148B T35717+CAPS [Suspect]
     Indication: CHRONIC MYELOID LEUKAEMIA
     Dosage: 400 MG
     Route: 048

REACTIONS (24)
  - BLOOD ALKALINE PHOSPHATASE [None]
  - BLOOD CALCIUM INCREASED [None]
  - BLOOD PARATHYROID HORMONE INCREASED [None]
  - BONE SCAN ABNORMAL [None]
  - CERVICAL SPINAL STENOSIS [None]
  - CONSTIPATION [None]
  - FATIGUE [None]
  - HEADACHE [None]
  - HYPERCALCAEMIA [None]
  - HYPERPARATHYROIDISM [None]
  - INTERVERTEBRAL DISC SPACE NARROWING [None]
  - LETHARGY [None]
  - MUSCULOSKELETAL CHEST PAIN [None]
  - MUSCULOSKELETAL PAIN [None]
  - NAUSEA [None]
  - OSTEOARTHRITIS [None]
  - OSTEOPENIA [None]
  - PARATHYROID SCAN ABNORMAL [None]
  - PARATHYROID TUMOUR BENIGN [None]
  - POLYDIPSIA [None]
  - POLYURIA [None]
  - RENAL FAILURE [None]
  - SCOLIOSIS [None]
  - THYROID NEOPLASM [None]
